FAERS Safety Report 21440573 (Version 1)
Quarter: 2022Q4

REPORT INFORMATION
  Report Type: Spontaneous
  Country: US (occurrence: None)
  Receive Date: 20221010
  Receipt Date: 20221010
  Transmission Date: 20230112
  Serious: No
  Sender: FDA-Public Use
  Company Number: None

PATIENT
  Age: 76 Year
  Sex: Male

DRUGS (2)
  1. RIVAROXABAN [Suspect]
     Active Substance: RIVAROXABAN
     Indication: Atrial fibrillation
     Dosage: FREQUENCY : DAILY;?
     Route: 048
     Dates: start: 20160506
  2. ASPIRIN [Suspect]
     Active Substance: ASPIRIN
     Indication: Coronary arterial stent insertion
     Dosage: FREQUENCY : DAILY;?
     Route: 048
     Dates: start: 20191016

REACTIONS (1)
  - Gastric haemorrhage [None]

NARRATIVE: CASE EVENT DATE: 20220922
